FAERS Safety Report 10669783 (Version 1)
Quarter: 2014Q4

REPORT INFORMATION
  Report Type: Spontaneous
  Country: US (occurrence: US)
  Receive Date: 20141222
  Receipt Date: 20141222
  Transmission Date: 20150529
  Serious: No
  Sender: FDA-Public Use
  Company Number: US-GLAXOSMITHKLINE-A1079449A

PATIENT

DRUGS (3)
  1. UNSPECIFIED MEDICATION [Suspect]
     Active Substance: UNSPECIFIED INGREDIENT
  2. NO CONCURRENT MEDICATION [Concomitant]
     Active Substance: UNSPECIFIED INGREDIENT
  3. AVODART [Suspect]
     Active Substance: DUTASTERIDE
     Indication: PRODUCT USED FOR UNKNOWN INDICATION
     Route: 048

REACTIONS (3)
  - Drug dispensing error [Unknown]
  - Prostatic specific antigen increased [Unknown]
  - Drug administration error [Unknown]
